FAERS Safety Report 5015897-4 (Version None)
Quarter: 2006Q2

REPORT INFORMATION
  Report Type: 
  Country: None (occurrence: None)
  Receive Date: 20060526
  Receipt Date: 20060510
  Transmission Date: 20061013
  Serious: Yes (Death, Disabling, Other)
  Sender: FDA-Public Use
  Company Number: 2006JP000688

PATIENT
  Age: 61 Year
  Sex: Male
  Weight: 43 kg

DRUGS (27)
  1. PROGRAF [Suspect]
     Indication: BONE MARROW TRANSPLANT
     Dosage: SEE IMAGE
     Route: 041
     Dates: start: 20030130, end: 20030219
  2. PROGRAF [Suspect]
     Indication: BONE MARROW TRANSPLANT
     Dosage: SEE IMAGE
     Route: 041
     Dates: start: 20030220, end: 20030227
  3. PROGRAF [Suspect]
     Indication: BONE MARROW TRANSPLANT
     Dosage: SEE IMAGE
     Route: 041
     Dates: start: 20030228, end: 20030228
  4. PROGRAF [Suspect]
     Indication: BONE MARROW TRANSPLANT
     Dosage: SEE IMAGE
     Route: 041
     Dates: start: 20030301, end: 20030302
  5. PROGRAF [Suspect]
     Indication: BONE MARROW TRANSPLANT
     Dosage: SEE IMAGE
     Route: 041
     Dates: start: 20030303
  6. PREDNISOLONE [Suspect]
     Dosage: 12.5 MG, UID/QD, ORAL
     Route: 048
     Dates: start: 20030115, end: 20030214
  7. METHOTREXATE [Concomitant]
  8. DIFLUCAN [Concomitant]
  9. PROGRAF [Concomitant]
  10. BACTAR (SULFAMETHOXAZOLE, TRIMETHOPRIM) [Concomitant]
  11. DENOSINE (GANCICLOVIR) [Concomitant]
  12. ALLOPURINOL [Concomitant]
  13. ZOVIRAX [Concomitant]
  14. LEVOFLOXACIN [Concomitant]
  15. FLUDARABINE [Concomitant]
  16. MABLIN (BUSULFAN) [Concomitant]
  17. VALPROATE SODIUM [Concomitant]
  18. MAXIPIME [Concomitant]
  19. FIRSTCIN (CEFOZOPRAN HYDROCHLORIDE) [Concomitant]
  20. VANCOMYCIN [Concomitant]
  21. BETAMETHASONE [Concomitant]
  22. DIFLUCAN [Concomitant]
  23. FOSCAVIR [Concomitant]
  24. SOL MEDROL (METHYLPREDNISOLONE, SUCCINATE SODIUM) [Concomitant]
  25. CEFPIRAMIDE SODIUM [Concomitant]
  26. ARASENA A (VIDARABINE) [Concomitant]
  27. MAXIPIME [Concomitant]

REACTIONS (10)
  - COMPLICATIONS OF BONE MARROW TRANSPLANT [None]
  - CYSTITIS HAEMORRHAGIC [None]
  - DRUG INEFFECTIVE [None]
  - ENCEPHALITIS HERPES [None]
  - GRAFT VERSUS HOST DISEASE [None]
  - HUMAN HERPES VIRUS 6 SEROLOGY POSITIVE [None]
  - PANCYTOPENIA [None]
  - PNEUMONIA [None]
  - RENAL FAILURE ACUTE [None]
  - THROMBOTIC MICROANGIOPATHY [None]
